APPROVED DRUG PRODUCT: VOSPIRE ER
Active Ingredient: ALBUTEROL SULFATE
Strength: EQ 4MG BASE
Dosage Form/Route: TABLET, EXTENDED RELEASE;ORAL
Application: A076130 | Product #002
Applicant: STRIDES PHARMA INTERNATIONAL AG
Approved: Sep 26, 2002 | RLD: No | RS: No | Type: DISCN